FAERS Safety Report 4989453-8 (Version None)
Quarter: 2006Q2

REPORT INFORMATION
  Report Type: 
  Country: None (occurrence: None)
  Receive Date: 20060502
  Receipt Date: 20050824
  Transmission Date: 20061013
  Serious: Yes (Hospitalization)
  Sender: FDA-Public Use
  Company Number: US-MERCK-0508USA04233

PATIENT
  Age: 55 Year
  Sex: Male
  Weight: 70 kg

DRUGS (4)
  1. VIOXX [Suspect]
     Indication: SHOULDER PAIN
     Route: 048
     Dates: start: 20010101, end: 20031207
  2. ASPIRIN [Concomitant]
     Route: 065
  3. NEXIUM [Concomitant]
     Route: 065
  4. ALLEGRA [Concomitant]
     Route: 065

REACTIONS (5)
  - CEREBRAL ARTERIOSCLEROSIS [None]
  - HYPERTENSION [None]
  - MYOCARDIAL INFARCTION [None]
  - RENAL MASS [None]
  - TRANSIENT ISCHAEMIC ATTACK [None]
